FAERS Safety Report 19081698 (Version 2)
Quarter: 2021Q2

REPORT INFORMATION
  Report Type: Report from Study
  Country: DE (occurrence: DE)
  Receive Date: 20210401
  Receipt Date: 20210504
  Transmission Date: 20210717
  Serious: Yes (Hospitalization, Other)
  Sender: FDA-Public Use
  Company Number: DE-BIOGEN-2020BI00935695

PATIENT
  Age: 48 Year
  Sex: Female

DRUGS (2)
  1. SPINRAZA [Suspect]
     Active Substance: NUSINERSEN
     Indication: SPINAL MUSCULAR ATROPHY
     Route: 037
     Dates: start: 20190222
  2. SPINRAZA [Suspect]
     Active Substance: NUSINERSEN
     Route: 037

REACTIONS (13)
  - Dizziness [Not Recovered/Not Resolved]
  - Blood bilirubin increased [Recovered/Resolved]
  - Delayed recovery from anaesthesia [Recovered/Resolved]
  - Neck pain [Recovered/Resolved]
  - Blood potassium decreased [Unknown]
  - Protein total decreased [Unknown]
  - Haemoglobin decreased [Unknown]
  - General physical health deterioration [Unknown]
  - Cholelithiasis [Recovered/Resolved]
  - Asthenia [Recovered/Resolved]
  - Drug effect less than expected [Recovered/Resolved]
  - White blood cell count decreased [Unknown]
  - Procedural anxiety [Unknown]

NARRATIVE: CASE EVENT DATE: 2020
